FAERS Safety Report 7595276-6 (Version None)
Quarter: 2011Q3

REPORT INFORMATION
  Report Type: 
  Country: None (occurrence: None)
  Receive Date: 20110707
  Receipt Date: 20110627
  Transmission Date: 20111222
  Serious: Yes (Hospitalization)
  Sender: FDA-Public Use
  Company Number: GB-ABBOTT-08P-167-0485540-00

PATIENT
  Age: 34 Year
  Sex: Male

DRUGS (18)
  1. COLISTIN SULFATE [Suspect]
     Indication: MYCOBACTERIUM ABSCESSUS INFECTION
  2. AZITHROMYCIN [Suspect]
     Indication: PRODUCT USED FOR UNKNOWN INDICATION
     Dosage: NOT REPORTED
  3. TOBRAMYCIN [Suspect]
     Indication: MYCOBACTERIUM ABSCESSUS INFECTION
     Dosage: NOT REPORTED
  4. INTERFERON GAMMA-1A [Suspect]
     Indication: PSEUDOMONAS INFECTION
     Dosage: NOT REPORTED
     Route: 058
  5. COLISTIN SULFATE [Suspect]
     Indication: PSEUDOMONAS INFECTION
     Dosage: NOT REPORTED
     Route: 042
  6. TOBI [Concomitant]
     Indication: PRODUCT USED FOR UNKNOWN INDICATION
     Route: 055
  7. CLARITHROMYCIN [Suspect]
     Indication: MYCOBACTERIUM ABSCESSUS INFECTION
  8. MEROPENEM [Suspect]
     Indication: PSEUDOMONAS INFECTION
     Dosage: NOT REPORTED
     Route: 042
  9. TOBRAMYCIN [Suspect]
     Indication: PSEUDOMONAS INFECTION
  10. MEROPENEM [Suspect]
     Indication: MYCOBACTERIUM ABSCESSUS INFECTION
  11. CIPROFLOXACIN [Suspect]
     Indication: PRODUCT USED FOR UNKNOWN INDICATION
     Dosage: NOT REPORTED
  12. CLARITHROMYCIN [Suspect]
     Indication: PSEUDOMONAS INFECTION
     Dosage: NOT REPORTED
  13. MINOCYCLINE HCL [Suspect]
     Indication: MYCOBACTERIUM ABSCESSUS INFECTION
  14. TOBRAMYCIN [Suspect]
  15. INTERFERON GAMMA-1A [Suspect]
     Indication: MYCOBACTERIUM ABSCESSUS INFECTION
  16. OMEPRAZOLE [Suspect]
     Indication: GASTROOESOPHAGEAL REFLUX DISEASE
     Dosage: NOT REPORTED
  17. MINOCYCLINE HCL [Suspect]
     Indication: PSEUDOMONAS INFECTION
     Dosage: NOT REPORTED
  18. TOBRAMYCIN [Concomitant]
     Dosage: NOT REPORTED

REACTIONS (12)
  - C-REACTIVE PROTEIN INCREASED [None]
  - PYREXIA [None]
  - ABDOMINAL PAIN [None]
  - CLOSTRIDIUM DIFFICILE COLITIS [None]
  - COLITIS [None]
  - NAUSEA [None]
  - ABDOMINAL DISTENSION [None]
  - PSEUDOMEMBRANOUS COLITIS [None]
  - TACHYCARDIA [None]
  - HYPOTENSION [None]
  - DIARRHOEA [None]
  - DEHYDRATION [None]
